FAERS Safety Report 17800897 (Version 3)
Quarter: 2020Q2

REPORT INFORMATION
  Report Type: Spontaneous
  Country: JP (occurrence: JP)
  Receive Date: 20200518
  Receipt Date: 20200617
  Transmission Date: 20200714
  Serious: Yes (Death, Other)
  Sender: FDA-Public Use
  Company Number: JP-AMGEN-JPNSP2020079342

PATIENT
  Age: 53 Year
  Sex: Male
  Weight: 54 kg

DRUGS (23)
  1. PRONON [Concomitant]
     Active Substance: PROPAFENONE
     Dosage: 150 MILLIGRAM, BID AFTER BREAKFAST AND DINNER
  2. CAMOSTAT MESILATE [Concomitant]
     Active Substance: CAMOSTAT MESYLATE
     Dosage: 200 MILLIGRAM, BID AFTER BREAKFAST AND DINNER
  3. PENLES [Concomitant]
     Active Substance: LIDOCAINE
     Dosage: 18 MILLIGRAM, QD 2 SHEETS BEFORE DIALYSIS
  4. DOPAMINE HYDROCHLORIDE. [Concomitant]
     Active Substance: DOPAMINE HYDROCHLORIDE
  5. CALTAN [Concomitant]
     Active Substance: CALCIUM CARBONATE
     Dosage: 500 MILLIGRAM, TID AFTER BREAKFAST, LUNCH AND DINNER
     Dates: end: 202004
  6. NEXIUM [Concomitant]
     Active Substance: ESOMEPRAZOLE MAGNESIUM
     Dosage: 20 MILLIGRAM, QD AFTER DINNER
  7. BACTRAMIN C [Concomitant]
     Dosage: UNK UNK, QD AFTER DINNER
  8. GLUCOSE OTSUKA [Concomitant]
  9. REBAMIPIDE [Concomitant]
     Active Substance: REBAMIPIDE
     Dosage: 100 MILLIGRAM, BID AFTER BREAKFAST AND DINNER
  10. BAYASPIRIN [Concomitant]
     Active Substance: ASPIRIN
     Dosage: 100 MILLIGRAM, QD AFTER BREAKFAST
  11. CALTAN [Concomitant]
     Active Substance: CALCIUM CARBONATE
     Dosage: 1000 MILLIGRAM, TID AFTER BREAKFAST, LUNCH AND DINNER
     Dates: start: 202004
  12. AZILVA [Concomitant]
     Active Substance: AZILSARTAN KAMEDOXOMIL
     Dosage: 20 MILLIGRAM, QD AFTER DINNER
  13. ADRENALINE (EPINEPHRINE) INJECTION BP 1:1000 [Concomitant]
  14. RIONA [Concomitant]
     Active Substance: FERRIC CITRATE ANHYDROUS
     Dosage: 500 MILLIGRAM, TID AFTER BREAKFAST, LUNCH AND DINNER
  15. LYRICA [Concomitant]
     Active Substance: PREGABALIN
     Dosage: 75 MILLIGRAM, QD BEFORE BEDTIME
  16. EVENITY [Suspect]
     Active Substance: ROMOSOZUMAB-AQQG
     Indication: OSTEOPOROSIS
     Dosage: 210 MILLIGRAM
     Route: 058
     Dates: start: 20190614
  17. MOHRUS PAP XR [Concomitant]
     Active Substance: KETOPROFEN
     Dosage: 240 MILLIGRAM, 1 SHEET QD
  18. PREDNISOLONE. [Concomitant]
     Active Substance: PREDNISOLONE
     Dosage: 18 MILLIGRAM, QD AFTER BREAKFAST
  19. FOSRENOL [Concomitant]
     Active Substance: LANTHANUM CARBONATE
     Dosage: 750 MILLIGRAM, BID IMMEDIATE LY AFTER LUNCH AND DINNER
  20. METHYCOBAL [Concomitant]
     Active Substance: METHYLCOBALAMIN
     Dosage: 500 MICROGRAM, BID AFTER BREAKFAST AND DINNER
  21. BISOPROLOL FUMARATE. [Concomitant]
     Active Substance: BISOPROLOL FUMARATE
     Dosage: 5 MILLIGRAM, QD AFTER BREAKFAS
  22. PHOSBLOCK [Concomitant]
     Active Substance: FERRIC HYDROXIDE
     Dosage: 750 MILLIGRAM, TID  AFTER BREAKFAST, LUNCH AND DINNER
  23. AMIODARONE HYDROCHLORIDE. [Concomitant]
     Active Substance: AMIODARONE HYDROCHLORIDE

REACTIONS (2)
  - Blood parathyroid hormone increased [Recovered/Resolved]
  - Acute coronary syndrome [Fatal]

NARRATIVE: CASE EVENT DATE: 20190702
